FAERS Safety Report 18978542 (Version 1)
Quarter: 2021Q1

REPORT INFORMATION
  Report Type: Spontaneous
  Country: AT (occurrence: AT)
  Receive Date: 20210307
  Receipt Date: 20210307
  Transmission Date: 20210420
  Serious: Yes (Other)
  Sender: FDA-Public Use
  Company Number: AT-009507513-2103AUT001083

PATIENT
  Sex: Male

DRUGS (5)
  1. PEMETREXED DISODIUM [Suspect]
     Active Substance: PEMETREXED DISODIUM
     Indication: LUNG NEOPLASM MALIGNANT
     Route: 065
  2. PEMBROLIZUMAB. [Suspect]
     Active Substance: PEMBROLIZUMAB
     Route: 065
  3. RAMUCIRUMAB [Suspect]
     Active Substance: RAMUCIRUMAB
     Indication: LUNG NEOPLASM MALIGNANT
     Route: 065
  4. CISPLATIN. [Suspect]
     Active Substance: CISPLATIN
     Indication: LUNG NEOPLASM MALIGNANT
     Route: 065
  5. DOCETAXEL. [Suspect]
     Active Substance: DOCETAXEL
     Indication: LUNG NEOPLASM MALIGNANT
     Route: 065

REACTIONS (4)
  - Drug ineffective [Unknown]
  - Malignant neoplasm progression [Unknown]
  - Lung neoplasm malignant [Unknown]
  - Metastases to liver [Unknown]

NARRATIVE: CASE EVENT DATE: 202101
